FAERS Safety Report 5347963-8 (Version None)
Quarter: 2007Q2

REPORT INFORMATION
  Report Type: 
  Country: None (occurrence: None)
  Receive Date: 20070508
  Receipt Date: 20060630
  Transmission Date: 20071010
  Serious: Yes (Hospitalization)
  Sender: FDA-Public Use
  Company Number: 234164K06USA

PATIENT
  Age: 39 Year
  Sex: Female
  Weight: 51.7101 kg

DRUGS (1)
  1. REBIF [Suspect]
     Indication: MULTIPLE SCLEROSIS
     Dosage: SEE IMAGE
     Dates: start: 20060101, end: 20060706

REACTIONS (2)
  - MULTIPLE SCLEROSIS RELAPSE [None]
  - URTICARIA [None]
